FAERS Safety Report 5717136-5 (Version None)
Quarter: 2008Q2

REPORT INFORMATION
  Report Type: 
  Country: None (occurrence: None)
  Receive Date: 20080424
  Receipt Date: 20080411
  Transmission Date: 20081010
  Serious: Yes (Other)
  Sender: FDA-Public Use
  Company Number: IE-GENENTECH-253659

PATIENT
  Sex: Female

DRUGS (10)
  1. XOLAIR [Suspect]
     Indication: DRUG USE FOR UNKNOWN INDICATION
     Dosage: 150 MG, 1/MONTH
     Dates: start: 20060721, end: 20070922
  2. DELTACORTRIL [Concomitant]
     Indication: DRUG USE FOR UNKNOWN INDICATION
  3. PANTOPRAZOLE SODIUM [Concomitant]
     Indication: DRUG USE FOR UNKNOWN INDICATION
  4. FRUMIL [Concomitant]
  5. TIOTROPIUM [Concomitant]
  6. SODIUM CHLORIDE INJ [Concomitant]
  7. SYMBICORT [Concomitant]
     Indication: DRUG USE FOR UNKNOWN INDICATION
  8. CEFUROXIME [Concomitant]
     Indication: DRUG USE FOR UNKNOWN INDICATION
  9. CLARITHROMYCIN [Concomitant]
     Indication: DRUG USE FOR UNKNOWN INDICATION
  10. STEROID (NAME UNKNOWN) [Concomitant]
     Indication: LOWER RESPIRATORY TRACT INFECTION

REACTIONS (3)
  - BLOOD IMMUNOGLOBULIN G DECREASED [None]
  - KERATITIS HERPETIC [None]
  - OTITIS MEDIA [None]
